FAERS Safety Report 17768225 (Version 1)
Quarter: 2020Q2

REPORT INFORMATION
  Report Type: Spontaneous
  Country: US (occurrence: US)
  Receive Date: 20200511
  Receipt Date: 20200511
  Transmission Date: 20200714
  Serious: Yes (Hospitalization)
  Sender: FDA-Public Use
  Company Number: US-ANIPHARMA-2020-US-008359

PATIENT
  Age: 24 Year
  Sex: Female

DRUGS (2)
  1. LITHIUM CARBONATE (NON-SPECIFIC) [Suspect]
     Active Substance: LITHIUM
     Indication: BIPOLAR DISORDER
     Route: 048
  2. RISPERIDONE. [Suspect]
     Active Substance: RISPERIDONE
     Indication: BIPOLAR DISORDER

REACTIONS (4)
  - Bundle branch block right [Recovered/Resolved]
  - Troponin I increased [Recovered/Resolved]
  - Supraventricular tachycardia [Unknown]
  - Intentional overdose [Recovered/Resolved]
